FAERS Safety Report 24547999 (Version 1)
Quarter: 2024Q4

REPORT INFORMATION
  Report Type: Spontaneous
  Country: BR (occurrence: BR)
  Receive Date: 20241025
  Receipt Date: 20241025
  Transmission Date: 20250114
  Serious: Yes (Death, Hospitalization)
  Sender: BOEHRINGER INGELHEIM
  Company Number: BR-Komodo Health-a23aa000003rdEPAAY

PATIENT
  Age: 77 Year
  Sex: Male
  Weight: 45 kg

DRUGS (5)
  1. SPIRIVA RESPIMAT [Suspect]
     Active Substance: TIOTROPIUM BROMIDE
     Indication: Chronic obstructive pulmonary disease
  2. OLODATEROL HYDROCHLORIDE\TIOTROPIUM BROMIDE MONOHYDRATE [Suspect]
     Active Substance: OLODATEROL HYDROCHLORIDE\TIOTROPIUM BROMIDE MONOHYDRATE
     Indication: Chronic obstructive pulmonary disease
     Dosage: FORM STRENGTH: 2.5 MICROGRAMS +2.5 MICROGRAMS.?1 PUFF IN THE MORNING AND 1 PUFF AT NIGHT, WITH A SPA
     Dates: start: 2021, end: 2024
  3. OLODATEROL HYDROCHLORIDE\TIOTROPIUM BROMIDE MONOHYDRATE [Suspect]
     Active Substance: OLODATEROL HYDROCHLORIDE\TIOTROPIUM BROMIDE MONOHYDRATE
     Dosage: FORM STRENGTH: 2.5 MICROGRAMS + 2.5 MICROGRAMS.?2 PUFFS IN THE MORNING AND 2 PUFFS AT NIGHT, WITH A
     Dates: start: 2024
  4. BUDESONIDE\FORMOTEROL FUMARATE [Suspect]
     Active Substance: BUDESONIDE\FORMOTEROL FUMARATE
     Indication: Product used for unknown indication
  5. BECLOMETHASONE DIPROPIONATE\FORMOTEROL FUMARATE\GLYCOPYRROLATE [Concomitant]
     Active Substance: BECLOMETHASONE DIPROPIONATE\FORMOTEROL FUMARATE\GLYCOPYRROLATE
     Indication: Chronic obstructive pulmonary disease
     Dosage: 1 PUFF IN THE MORNING AND 1 PUFF AT NIGHT.

REACTIONS (13)
  - Chronic obstructive pulmonary disease [Fatal]
  - Pulmonary sepsis [Fatal]
  - Pneumonia [Unknown]
  - Dyspnoea [Unknown]
  - Off label use [Recovered/Resolved]
  - Intentional device misuse [Unknown]
  - Renal disorder [Unknown]
  - Arrhythmia [Unknown]
  - Extra dose administered [Unknown]
  - Tremor [Unknown]
  - Drug ineffective [Unknown]
  - Fatigue [Unknown]
  - Dyspnoea [Unknown]

NARRATIVE: CASE EVENT DATE: 20210101
